FAERS Safety Report 16027907 (Version 1)
Quarter: 2019Q1

REPORT INFORMATION
  Report Type: Spontaneous
  Country: US (occurrence: US)
  Receive Date: 20190304
  Receipt Date: 20190304
  Transmission Date: 20190418
  Serious: No
  Sender: FDA-Public Use
  Company Number: US-IMPAX LABORATORIES, LLC-2018-IPXL-01107

PATIENT
  Age: 76 Year
  Sex: Female
  Weight: 62 kg

DRUGS (5)
  1. RYTARY [Suspect]
     Active Substance: CARBIDOPA\LEVODOPA
     Dosage: 23.75/95 MG, 8 CAPSULES, QD
     Route: 048
     Dates: start: 2018
  2. RYTARY [Suspect]
     Active Substance: CARBIDOPA\LEVODOPA
     Indication: PARKINSON^S DISEASE
     Dosage: 23.75/95, 3 CAPSULE A DAY
     Route: 048
     Dates: start: 2017
  3. RYTARY [Suspect]
     Active Substance: CARBIDOPA\LEVODOPA
     Dosage: 23.75/95 MG, 4 CAPSULE A DAY
     Route: 048
     Dates: start: 201803, end: 2018
  4. RYTARY [Suspect]
     Active Substance: CARBIDOPA\LEVODOPA
     Dosage: 23.75/95 MG, 6-7 CAPSULE A DAY
     Route: 048
     Dates: start: 2018, end: 2018
  5. PRAMIPEXOLE. [Concomitant]
     Active Substance: PRAMIPEXOLE
     Indication: PARKINSON^S DISEASE
     Dosage: 1 TABLET, TID
     Route: 048

REACTIONS (4)
  - Labelled drug-food interaction medication error [Unknown]
  - Drug effect incomplete [Unknown]
  - Musculoskeletal stiffness [Unknown]
  - Treatment noncompliance [Unknown]
